FAERS Safety Report 13926402 (Version 1)
Quarter: 2017Q3

REPORT INFORMATION
  Report Type: Spontaneous
  Country: US (occurrence: None)
  Receive Date: 20170831
  Receipt Date: 20170831
  Transmission Date: 20171127
  Serious: Yes (Death)
  Sender: FDA-Public Use
  Company Number: None

PATIENT
  Age: 84 Year
  Sex: Female

DRUGS (1)
  1. RECLAST [Suspect]
     Active Substance: ZOLEDRONIC ACID
     Indication: SENILE OSTEOPOROSIS
     Dosage: 5MG YEARLY IV
     Route: 042
     Dates: start: 20130502

REACTIONS (1)
  - Death [None]

NARRATIVE: CASE EVENT DATE: 20170629
